FAERS Safety Report 6254156-9 (Version None)
Quarter: 2009Q2

REPORT INFORMATION
  Report Type: 
  Country: None (occurrence: None)
  Receive Date: 20090630
  Receipt Date: 20090630
  Transmission Date: 20091009
  Serious: Yes (Hospitalization)
  Sender: FDA-Public Use
  Company Number: None

PATIENT
  Age: 56 Year
  Sex: Female
  Weight: 85.7298 kg

DRUGS (1)
  1. INDIGO CARMINE [Suspect]
     Dosage: 10ML 1X IV
     Route: 042
     Dates: start: 20090618, end: 20090618

REACTIONS (4)
  - BLOOD PRESSURE DECREASED [None]
  - BRONCHOSPASM [None]
  - OXYGEN SATURATION DECREASED [None]
  - URTICARIA [None]
